FAERS Safety Report 5672058-3 (Version None)
Quarter: 2008Q1

REPORT INFORMATION
  Report Type: 
  Country: None (occurrence: None)
  Receive Date: 20080317
  Receipt Date: 20080317
  Transmission Date: 20080703
  Serious: Yes (Life-Threatening, Other)
  Sender: FDA-Public Use
  Company Number: None

PATIENT
  Sex: Female
  Weight: 113.3993 kg

DRUGS (1)
  1. AMBIEN CR [Suspect]
     Indication: DEPRESSION
     Dosage: ONCE
     Dates: start: 20000101, end: 20080315

REACTIONS (1)
  - DRUG DEPENDENCE [None]
